FAERS Safety Report 12487557 (Version 1)
Quarter: 2016Q2

REPORT INFORMATION
  Report Type: Spontaneous
  Country: US (occurrence: None)
  Receive Date: 20160621
  Receipt Date: 20160621
  Transmission Date: 20160815
  Serious: Yes (Disabling)
  Sender: FDA-Public Use
  Company Number: None

PATIENT
  Age: 59 Year
  Sex: Female
  Weight: 88.45 kg

DRUGS (7)
  1. HYDROCODONE [Concomitant]
     Active Substance: HYDROCODONE
  2. GADOLINIUM [Suspect]
     Active Substance: GADOLINIUM
     Indication: NUCLEAR MAGNETIC RESONANCE IMAGING
     Dosage: ONLY DURING MRI INTO A VEIN
     Route: 042
  3. CURCUMIN [Concomitant]
     Active Substance: CURCUMIN
  4. NATURAL INFLAMMATORIES [Concomitant]
  5. RUTIN [Concomitant]
     Active Substance: RUTIN
  6. KRILL OIL [Concomitant]
     Active Substance: DIETARY SUPPLEMENT
  7. MULTIVITAMIN W/ MINERALS [Concomitant]

REACTIONS (6)
  - Skin hypertrophy [None]
  - Inflammation [None]
  - Pain [None]
  - Rash [None]
  - Neuropathy peripheral [None]
  - Skin lesion [None]
